FAERS Safety Report 24706003 (Version 1)
Quarter: 2024Q4

REPORT INFORMATION
  Report Type: Spontaneous
  Country: US (occurrence: None)
  Receive Date: 20241205
  Receipt Date: 20241205
  Transmission Date: 20250114
  Serious: Yes (Hospitalization)
  Sender: Public
  Company Number: None

PATIENT
  Sex: Male

DRUGS (1)
  1. SUNITINIB [Suspect]
     Active Substance: SUNITINIB
     Indication: Renal cancer
     Dosage: FREQ: TAKE 1 CAPSULE BY MOUTH DAILY FOR 4 WEEKS ON AND 2 WEEKS OFF
     Route: 048
     Dates: start: 20211012

REACTIONS (1)
  - Diverticulitis [None]
